FAERS Safety Report 5987198-9 (Version None)
Quarter: 2008Q4

REPORT INFORMATION
  Report Type: 
  Country: None (occurrence: None)
  Receive Date: 20081209
  Receipt Date: 20081201
  Transmission Date: 20090506
  Serious: Yes (Hospitalization)
  Sender: FDA-Public Use
  Company Number: US-ELI_LILLY_AND_COMPANY-US200806003429

PATIENT
  Sex: Female
  Weight: 96.145 kg

DRUGS (14)
  1. BYETTA [Suspect]
     Indication: TYPE 2 DIABETES MELLITUS
     Dosage: 5 UG, 2/D
     Route: 058
     Dates: start: 20070501, end: 20070601
  2. BYETTA [Suspect]
     Dosage: 10 UG, 2/D
     Route: 058
     Dates: start: 20070601
  3. BYETTA [Suspect]
     Dosage: 10 UG, 2/D
     Route: 058
     Dates: start: 20070601
  4. BYETTA [Suspect]
     Dosage: 10 UG, 2/D
     Route: 058
     Dates: start: 20071101
  5. MUSCLE RELAXANTS [Concomitant]
     Indication: MUSCLE SPASMS
  6. METHOCARBAMOL [Concomitant]
     Dosage: 750 MG, UNK
     Dates: start: 19900101, end: 20080312
  7. METHOCARBAMOL [Concomitant]
     Dosage: 750 MG, UNK
     Dates: start: 20080312
  8. HYDROCODONE BITARTRATE [Concomitant]
     Indication: BACK PAIN
     Dosage: 7.5 MG, AS NEEDED
     Dates: start: 19900101, end: 20080312
  9. HYDROCODONE BITARTRATE [Concomitant]
     Dosage: 7.5 MG, AS NEEDED
     Dates: start: 20080312
  10. ACTOS [Concomitant]
     Indication: TYPE 2 DIABETES MELLITUS
     Dosage: 10 MG, UNK
  11. ASPIRIN [Concomitant]
     Indication: ANTICOAGULANT THERAPY
     Dosage: UNK, UNKNOWN
  12. TRAZODONE HCL [Concomitant]
     Indication: INSOMNIA
     Dosage: UNK, UNKNOWN
  13. BUSPIRONE HCL [Concomitant]
     Indication: ANXIETY
     Dosage: UNK, UNKNOWN
  14. ANTIINFLAMMATORY/ANTIRHEUMATIC PRODUCTS [Concomitant]
     Indication: ARTHRITIS
     Dosage: UNK, UNKNOWN

REACTIONS (7)
  - ANXIETY [None]
  - BACK PAIN [None]
  - FALL [None]
  - INJECTION SITE HAEMORRHAGE [None]
  - MUSCLE SPASMS [None]
  - SPINAL CORD DISORDER [None]
  - STRESS [None]
